FAERS Safety Report 25076034 (Version 1)
Quarter: 2025Q1

REPORT INFORMATION
  Report Type: Spontaneous
  Country: US (occurrence: US)
  Receive Date: 20250313
  Receipt Date: 20250313
  Transmission Date: 20250408
  Serious: No
  Sender: Kenvue
  Company Number: US-KENVUE-20250206858

PATIENT
  Age: 77 Year
  Sex: Female

DRUGS (2)
  1. WOMENS ROGAINE UNSCENTED [Suspect]
     Active Substance: MINOXIDIL
     Indication: Alopecia
     Dosage: FULL CUP, ONCE A DAY
     Route: 061
     Dates: start: 202408
  2. medication for cholesterol [Concomitant]
     Indication: Blood cholesterol increased
     Route: 065

REACTIONS (4)
  - Application site pruritus [Recovering/Resolving]
  - Application site acne [Recovering/Resolving]
  - Application site rash [Recovering/Resolving]
  - Overdose [Unknown]

NARRATIVE: CASE EVENT DATE: 20240801
